FAERS Safety Report 18783450 (Version 1)
Quarter: 2021Q1

REPORT INFORMATION
  Report Type: Report from Study
  Country: US (occurrence: US)
  Receive Date: 20210125
  Receipt Date: 20210125
  Transmission Date: 20210419
  Serious: Yes (Other)
  Sender: FDA-Public Use
  Company Number: US-BAYER-2021-033430

PATIENT
  Age: 77 Year
  Sex: Male

DRUGS (1)
  1. NUBEQA [Suspect]
     Active Substance: DAROLUTAMIDE
     Indication: PROSTATE CANCER
     Dosage: 600 MG, BID
     Route: 048
     Dates: start: 20200413

REACTIONS (3)
  - Nervous system disorder [Not Recovered/Not Resolved]
  - General physical health deterioration [Not Recovered/Not Resolved]
  - Fungal infection [Not Recovered/Not Resolved]
